FAERS Safety Report 5935304-4 (Version None)
Quarter: 2008Q4

REPORT INFORMATION
  Report Type: 
  Country: None (occurrence: None)
  Receive Date: 20081030
  Receipt Date: 20081028
  Transmission Date: 20090506
  Serious: Yes (Other)
  Sender: FDA-Public Use
  Company Number: FR-BRISTOL-MYERS SQUIBB COMPANY-14380307

PATIENT
  Age: 79 Year
  Sex: Female

DRUGS (1)
  1. TAXOL [Suspect]
     Indication: BLADDER CANCER
     Dosage: RECEIVED 3 COURSES
     Route: 042

REACTIONS (2)
  - CEREBROVASCULAR ACCIDENT [None]
  - TRANSIENT ISCHAEMIC ATTACK [None]
